FAERS Safety Report 22606139 (Version 1)
Quarter: 2023Q2

REPORT INFORMATION
  Report Type: Spontaneous
  Country: GB (occurrence: GB)
  Receive Date: 20230615
  Receipt Date: 20230615
  Transmission Date: 20230721
  Serious: Yes (Hospitalization)
  Sender: FDA-Public Use
  Company Number: None

PATIENT
  Age: 48 Year
  Sex: Female

DRUGS (6)
  1. ACETAMINOPHEN [Suspect]
     Active Substance: ACETAMINOPHEN
     Dosage: 1 G FOUR TIMES, 2.6G PER 24-HOUR. TOTAL 26 GRAMS IN 235.5 HOURS, ONSET OF REACTION WAS 10 DAYS.
     Route: 042
  2. CYANOCOBALAMIN [Concomitant]
     Active Substance: CYANOCOBALAMIN
     Dosage: 50 MCG DAILY
     Route: 065
  3. FOLIC ACID [Concomitant]
     Active Substance: FOLIC ACID
     Dosage: 5 MG DAILY
     Route: 065
  4. RIVAROXABAN [Concomitant]
     Active Substance: RIVAROXABAN
     Indication: Deep vein thrombosis
     Dosage: DIRECT-ACTING
     Route: 048
  5. FENTANYL [Concomitant]
     Active Substance: FENTANYL
     Indication: Analgesic therapy
     Route: 065
  6. GABAPENTIN [Concomitant]
     Active Substance: GABAPENTIN
     Dosage: 100 MG TDS
     Route: 065

REACTIONS (24)
  - Toxicity to various agents [Unknown]
  - Acute hepatic failure [Recovered/Resolved]
  - Hypoglycaemia [Recovered/Resolved]
  - Alanine aminotransferase increased [Recovered/Resolved]
  - Blood alkaline phosphatase increased [Unknown]
  - Blood bilirubin increased [Unknown]
  - C-reactive protein increased [Unknown]
  - Blood lactic acid increased [Unknown]
  - Ammonia increased [Unknown]
  - Somnolence [Unknown]
  - Hepatic encephalopathy [Recovered/Resolved]
  - Asterixis [Unknown]
  - Jaundice [Recovering/Resolving]
  - Blood homocysteine decreased [Not Recovered/Not Resolved]
  - Amino acid level increased [Not Recovered/Not Resolved]
  - Steatohepatitis [Unknown]
  - Hepatic steatosis [Recovered/Resolved]
  - Necrosis [Unknown]
  - Inflammation [Unknown]
  - Cholestasis [Unknown]
  - Fibrosis [Recovered/Resolved]
  - Pulmonary oedema [Unknown]
  - Hypoalbuminaemia [Unknown]
  - Hypokalaemia [Unknown]
